FAERS Safety Report 5503209-9 (Version None)
Quarter: 2007Q4

REPORT INFORMATION
  Report Type: 
  Country: None (occurrence: None)
  Receive Date: 20071031
  Receipt Date: 20071019
  Transmission Date: 20080405
  Serious: Yes (Other)
  Sender: FDA-Public Use
  Company Number: US-PFIZER INC-2007088963

PATIENT
  Sex: Female
  Weight: 59 kg

DRUGS (3)
  1. CHANTIX [Suspect]
     Indication: SMOKING CESSATION THERAPY
     Dates: start: 20071016, end: 20071019
  2. EPIPEN [Concomitant]
     Indication: HYPERSENSITIVITY
  3. WELLBUTRIN [Concomitant]

REACTIONS (3)
  - EYE SWELLING [None]
  - FACE OEDEMA [None]
  - PRURITUS [None]
